FAERS Safety Report 4711783-5 (Version None)
Quarter: 2005Q3

REPORT INFORMATION
  Report Type: 
  Country: None (occurrence: None)
  Receive Date: 20050712
  Receipt Date: 20050630
  Transmission Date: 20060218
  Serious: Yes (Hospitalization, Other)
  Sender: FDA-Public Use
  Company Number: GB-JNJFOC-20050700012

PATIENT
  Sex: Male
  Weight: 66 kg

DRUGS (9)
  1. REMICADE [Suspect]
     Indication: RHEUMATOID ARTHRITIS
     Route: 042
  2. METHOTREXATE [Concomitant]
     Route: 065
  3. PREDNISOLONE [Concomitant]
     Route: 065
  4. RISEDRONATE [Concomitant]
     Route: 065
  5. LANSOPRAZOLE [Concomitant]
     Route: 065
  6. FOLIC ACID [Concomitant]
     Route: 065
  7. ACETAMINOPHEN [Concomitant]
     Route: 065
  8. PENICILLIN [Concomitant]
     Route: 065
  9. HYDROXYZINE [Concomitant]
     Route: 065

REACTIONS (5)
  - DECREASED APPETITE [None]
  - LETHARGY [None]
  - LOWER RESPIRATORY TRACT INFECTION [None]
  - MALAISE [None]
  - METHICILLIN-RESISTANT STAPHYLOCOCCAL AUREUS TEST POSITIVE [None]
